FAERS Safety Report 17974835 (Version 26)
Quarter: 2025Q2

REPORT INFORMATION
  Report Type: Report from Study
  Country: US (occurrence: US)
  Receive Date: 20200702
  Receipt Date: 20250418
  Transmission Date: 20250717
  Serious: Yes (Other)
  Sender: TAKEDA
  Company Number: US-SHIRE-US202019762

PATIENT
  Age: 60 Year
  Sex: Female
  Weight: 107 kg

DRUGS (39)
  1. HUMAN IMMUNOGLOBULIN G [Suspect]
     Active Substance: HUMAN IMMUNOGLOBULIN G
     Indication: Primary immunodeficiency syndrome
  2. HUMAN IMMUNOGLOBULIN G [Suspect]
     Active Substance: HUMAN IMMUNOGLOBULIN G
     Indication: Immunodeficiency common variable
     Dosage: 30 GRAM, Q2WEEKS
     Dates: start: 20190703
  3. HUMAN IMMUNOGLOBULIN G [Suspect]
     Active Substance: HUMAN IMMUNOGLOBULIN G
  4. HUMAN IMMUNOGLOBULIN G [Suspect]
     Active Substance: HUMAN IMMUNOGLOBULIN G
     Dosage: 30 GRAM, Q2WEEKS
  5. HUMAN IMMUNOGLOBULIN G [Suspect]
     Active Substance: HUMAN IMMUNOGLOBULIN G
     Dosage: UNK UNK, Q2WEEKS
     Dates: start: 2017
  6. CYMBALTA [Concomitant]
     Active Substance: DULOXETINE HYDROCHLORIDE
  7. CARVEDILOL [Concomitant]
     Active Substance: CARVEDILOL
  8. VALACYCLOVIR [Concomitant]
     Active Substance: VALACYCLOVIR HYDROCHLORIDE
  9. AMBIEN [Concomitant]
     Active Substance: ZOLPIDEM TARTRATE
  10. PROTONIX [Concomitant]
     Active Substance: PANTOPRAZOLE SODIUM
  11. CYANOCOBALAMIN [Concomitant]
     Active Substance: CYANOCOBALAMIN
  12. EVOXAC [Concomitant]
     Active Substance: CEVIMELINE HYDROCHLORIDE
  13. NORCO [Concomitant]
     Active Substance: ACETAMINOPHEN\HYDROCODONE BITARTRATE
  14. PIOGLITAZONE [Concomitant]
     Active Substance: PIOGLITAZONE
  15. LIDOCAINE [Concomitant]
     Active Substance: LIDOCAINE
  16. DIPHENHYDRAMINE [Concomitant]
     Active Substance: DIPHENHYDRAMINE
  17. NITROGLYCERIN [Concomitant]
     Active Substance: NITROGLYCERIN
  18. CELEBREX [Concomitant]
     Active Substance: CELECOXIB
  19. CRESTOR [Concomitant]
     Active Substance: ROSUVASTATIN CALCIUM
  20. OXYGEN [Concomitant]
     Active Substance: OXYGEN
  21. DIPHENHYDRAMINE HYDROCHLORIDE [Concomitant]
     Active Substance: DIPHENHYDRAMINE HYDROCHLORIDE
  22. BENICAR [Concomitant]
     Active Substance: OLMESARTAN MEDOXOMIL
  23. NP THYROID [Concomitant]
     Active Substance: LEVOTHYROXINE\LIOTHYRONINE
  24. ESTRACE [Concomitant]
     Active Substance: ESTRADIOL
  25. VITAMIN D3 [Concomitant]
     Active Substance: CHOLECALCIFEROL
  26. AZELASTINE HYDROCHLORIDE\FLUTICASONE PROPIONATE [Concomitant]
     Active Substance: AZELASTINE HYDROCHLORIDE\FLUTICASONE PROPIONATE
  27. EPINEPHRINE [Concomitant]
     Active Substance: EPINEPHRINE
  28. HYDRALAZINE HCL [Concomitant]
     Active Substance: HYDRALAZINE HYDROCHLORIDE
  29. PRAZOSIN [Concomitant]
     Active Substance: PRAZOSIN
  30. COLESEVELAM HYDROCHLORIDE [Concomitant]
     Active Substance: COLESEVELAM HYDROCHLORIDE
  31. CYCLOBENZAPRINE HYDROCHLORIDE [Concomitant]
     Active Substance: CYCLOBENZAPRINE HYDROCHLORIDE
  32. MELOXICAM [Concomitant]
     Active Substance: MELOXICAM
     Indication: Rash
  33. Lmx [Concomitant]
  34. HYDRALAZINE [Concomitant]
     Active Substance: HYDRALAZINE HYDROCHLORIDE
  35. MODAFINIL [Concomitant]
     Active Substance: MODAFINIL
  36. AZITHROMYCIN [Concomitant]
     Active Substance: AZITHROMYCIN
  37. TRULICITY [Concomitant]
     Active Substance: DULAGLUTIDE
  38. VITAMIN D2 [Concomitant]
     Active Substance: ERGOCALCIFEROL
  39. LUNESTA [Concomitant]
     Active Substance: ESZOPICLONE

REACTIONS (33)
  - Sjogren^s syndrome [Not Recovered/Not Resolved]
  - Autoimmune disorder [Not Recovered/Not Resolved]
  - Keratorhexis [Unknown]
  - Adrenal neoplasm [Unknown]
  - Sleep-related hypoventilation [Not Recovered/Not Resolved]
  - Diabetes mellitus [Not Recovered/Not Resolved]
  - Oesophageal candidiasis [Unknown]
  - Pancreatic failure [Unknown]
  - Mouth ulceration [Unknown]
  - Candida infection [Unknown]
  - Spinal osteoarthritis [Unknown]
  - Blood pressure increased [Unknown]
  - Rash [Unknown]
  - Tooth fracture [Unknown]
  - Heart rate decreased [Unknown]
  - Blood pressure inadequately controlled [Unknown]
  - Lung disorder [Unknown]
  - Chronic obstructive pulmonary disease [Not Recovered/Not Resolved]
  - Skin infection [Unknown]
  - Skin bacterial infection [Not Recovered/Not Resolved]
  - Infusion related reaction [Unknown]
  - Pancreatic disorder [Unknown]
  - Product dose omission issue [Recovered/Resolved]
  - Inappropriate schedule of product administration [Recovered/Resolved]
  - Blood pressure abnormal [Unknown]
  - Oral candidiasis [Unknown]
  - Oxygen saturation decreased [Unknown]
  - Dyspnoea [Unknown]
  - Arthralgia [Unknown]
  - Fatigue [Unknown]
  - Back pain [Unknown]
  - Arthritis [Unknown]
  - Sleep disorder [Unknown]

NARRATIVE: CASE EVENT DATE: 20220606
